FAERS Safety Report 20665418 (Version 1)
Quarter: 2022Q2

REPORT INFORMATION
  Report Type: Spontaneous
  Country: US (occurrence: US)
  Receive Date: 20220402
  Receipt Date: 20220402
  Transmission Date: 20220720
  Serious: Yes (Hospitalization)
  Sender: FDA-Public Use
  Company Number: US-NOVARTISPH-NVSC2022US073063

PATIENT
  Sex: Female

DRUGS (2)
  1. MEKINIST [Suspect]
     Active Substance: TRAMETINIB DIMETHYL SULFOXIDE
     Indication: Thyroid cancer
     Dosage: 1.5 MG, QD
     Route: 048
     Dates: start: 20220114
  2. TAFINLAR [Suspect]
     Active Substance: DABRAFENIB MESYLATE
     Indication: Thyroid cancer
     Dosage: 3 DOSAGE FORM, QD (1 CAPSULE BY MOUTH EVERY MORNING AND TAKE 2 CAPSULE BY MOUTH EVERY EVENING)
     Route: 048
     Dates: start: 20220114

REACTIONS (1)
  - Dysphagia [Unknown]
